FAERS Safety Report 7861841-1 (Version None)
Quarter: 2011Q4

REPORT INFORMATION
  Report Type: 
  Country: None (occurrence: None)
  Receive Date: 20111027
  Receipt Date: 20101118
  Transmission Date: 20120403
  Serious: No
  Sender: FDA-Public Use
  Company Number: US-AMGEN-USASP2010005472

PATIENT
  Sex: Female

DRUGS (2)
  1. METHOTREXATE [Concomitant]
  2. ENBREL [Suspect]
     Indication: RHEUMATOID ARTHRITIS
     Dates: start: 19981201

REACTIONS (5)
  - NODULE [None]
  - INJECTION SITE PAIN [None]
  - BUNION [None]
  - WEIGHT INCREASED [None]
  - BACK DISORDER [None]
